FAERS Safety Report 7707036-3 (Version None)
Quarter: 2011Q3

REPORT INFORMATION
  Report Type: 
  Country: None (occurrence: None)
  Receive Date: 20110818
  Receipt Date: 20110803
  Transmission Date: 20111222
  Serious: Yes (Other)
  Sender: FDA-Public Use
  Company Number: DSA_47376_2011

PATIENT
  Age: 77 Year
  Sex: Female

DRUGS (14)
  1. NORVASC [Suspect]
     Indication: PRODUCT USED FOR UNKNOWN INDICATION
     Dosage: (5 MG QD ORAL)
     Dates: start: 20101020
  2. BERIZYM [Concomitant]
  3. ADENOSINE [Concomitant]
  4. DEPAS [Concomitant]
  5. LANSOPRAZOLE [Concomitant]
  6. HYZAAR [Suspect]
     Indication: PRODUCT USED FOR UNKNOWN INDICATION
     Dosage: (1 DF QD ORAL)
     Route: 048
     Dates: start: 20110713
  7. ENALAPRIL MALEATE [Suspect]
     Indication: PRODUCT USED FOR UNKNOWN INDICATION
     Dosage: (5 MG QD ORAL)
     Route: 048
     Dates: start: 20091207, end: 20110606
  8. HALCION [Suspect]
     Indication: PRODUCT USED FOR UNKNOWN INDICATION
     Dosage: (0.25 MG QD ORAL)
     Route: 048
  9. BIOFERMIN [Concomitant]
  10. PREDNISOLONE [Concomitant]
  11. SANCOBA [Concomitant]
  12. LENDORMIN (LENDORMIN - BROTIZOLAM) [Suspect]
     Indication: PRODUCT USED FOR UNKNOWN INDICATION
     Dosage: (0.5 MG QD ORAL)
     Route: 048
     Dates: start: 20100104
  13. MUCOSTA [Concomitant]
  14. METHYCOBAL [Concomitant]

REACTIONS (2)
  - DYSGEUSIA [None]
  - SUDDEN HEARING LOSS [None]
